FAERS Safety Report 15844532 (Version 2)
Quarter: 2019Q1

REPORT INFORMATION
  Report Type: Spontaneous
  Country: DK (occurrence: DK)
  Receive Date: 20190118
  Receipt Date: 20190225
  Transmission Date: 20190417
  Serious: Yes (Hospitalization)
  Sender: FDA-Public Use
  Company Number: DK-ELI_LILLY_AND_COMPANY-DK201901006571

PATIENT
  Age: 19 Year
  Sex: Male
  Weight: 92 kg

DRUGS (4)
  1. OLANZAPINE. [Concomitant]
     Active Substance: OLANZAPINE
     Indication: ANXIETY
     Dosage: 5 MG, OTHER
     Route: 048
     Dates: start: 20170119, end: 20181221
  2. ALPRAZOLAM. [Concomitant]
     Active Substance: ALPRAZOLAM
     Indication: ANXIETY
     Dosage: 0.5 MG, OTHER
     Route: 048
     Dates: start: 20170317
  3. ARIPIPRAZOL [Concomitant]
     Active Substance: ARIPIPRAZOLE
     Indication: AUTISM SPECTRUM DISORDER
     Dosage: 2.5 MG, DAILY
     Route: 048
     Dates: start: 2000
  4. STRATTERA [Suspect]
     Active Substance: ATOMOXETINE HYDROCHLORIDE
     Indication: ATTENTION DEFICIT/HYPERACTIVITY DISORDER
     Dosage: 1 DF, DAILY
     Route: 048
     Dates: start: 20180920, end: 20181211

REACTIONS (8)
  - Restlessness [Recovering/Resolving]
  - Crying [Recovering/Resolving]
  - Cold sweat [Unknown]
  - Suicidal ideation [Recovered/Resolved]
  - Affect lability [Recovering/Resolving]
  - Psychotic disorder [Recovering/Resolving]
  - Abdominal pain [Unknown]
  - Aggression [Recovering/Resolving]

NARRATIVE: CASE EVENT DATE: 201811
